FAERS Safety Report 23681446 (Version 9)
Quarter: 2025Q1

REPORT INFORMATION
  Report Type: Report from Study
  Country: CA (occurrence: CA)
  Receive Date: 20240328
  Receipt Date: 20250103
  Transmission Date: 20250409
  Serious: Yes (Hospitalization, Other)
  Sender: GLAXOSMITHKLINE
  Company Number: CA-MMM-H71X4LZ0

PATIENT

DRUGS (14)
  1. MEPOLIZUMAB [Suspect]
     Active Substance: MEPOLIZUMAB
     Indication: Asthma
     Dosage: 100 MG, Q4W
     Route: 058
     Dates: start: 20190813
  2. MEPOLIZUMAB [Suspect]
     Active Substance: MEPOLIZUMAB
     Indication: Asthma
     Dosage: 100 MG, Q4W
     Route: 058
  3. MEPOLIZUMAB [Suspect]
     Active Substance: MEPOLIZUMAB
     Indication: Asthma
     Dosage: 100 MG, Q4W
     Route: 058
  4. MEPOLIZUMAB [Suspect]
     Active Substance: MEPOLIZUMAB
     Indication: Asthma
     Dosage: 100 MG, Q4W
     Route: 058
  5. MEPOLIZUMAB [Suspect]
     Active Substance: MEPOLIZUMAB
     Indication: Asthma
     Dosage: 100 MG, Q4W
     Route: 058
  6. MEPOLIZUMAB [Suspect]
     Active Substance: MEPOLIZUMAB
     Indication: Asthma
     Dosage: 100 MG, Q4W
     Route: 058
  7. PREDNISONE [Suspect]
     Active Substance: PREDNISONE
     Indication: Swelling
  8. PREDNISONE [Suspect]
     Active Substance: PREDNISONE
     Indication: Abdominal distension
     Dates: end: 20240414
  9. BOTOX [Suspect]
     Active Substance: ONABOTULINUMTOXINA
     Indication: Product used for unknown indication
     Dates: start: 20230827
  10. CORTISONE [Suspect]
     Active Substance: CORTISONE
     Indication: Osteoarthritis
  11. COVID-19 VACCINE [Concomitant]
     Indication: COVID-19 prophylaxis
  12. INFLUENZA VIRUS VACCINE [Concomitant]
     Active Substance: INFLUENZA VIRUS VACCINE
     Indication: Product used for unknown indication
  13. PROMETRIUM [Concomitant]
     Active Substance: PROGESTERONE
     Indication: Hormone replacement therapy
  14. ESTROGEL [Concomitant]
     Active Substance: ESTRADIOL
     Indication: Menopause
     Route: 062

REACTIONS (33)
  - Swelling [Unknown]
  - Abdominal pain [Unknown]
  - Abdominal distension [Unknown]
  - Fall [Unknown]
  - Cataract [Unknown]
  - Rheumatoid arthritis [Unknown]
  - Periarthritis [Unknown]
  - Osteoarthritis [Unknown]
  - Blood pressure systolic decreased [Unknown]
  - Heart rate decreased [Unknown]
  - Pain [Unknown]
  - Arthralgia [Unknown]
  - Weight decreased [Unknown]
  - Telangiectasia [Unknown]
  - Diarrhoea [Recovering/Resolving]
  - Malaise [Unknown]
  - Dyspnoea [Recovered/Resolved]
  - Neck pain [Unknown]
  - Gastroenteritis [Recovered/Resolved]
  - Nausea [Unknown]
  - Vomiting [Unknown]
  - Ageusia [Unknown]
  - Decreased appetite [Unknown]
  - Asthenia [Unknown]
  - Pain in extremity [Unknown]
  - Stress [Unknown]
  - Limb discomfort [Unknown]
  - Joint swelling [Unknown]
  - Injection site pain [Not Recovered/Not Resolved]
  - Back pain [Unknown]
  - Balance disorder [Unknown]
  - COVID-19 [Recovering/Resolving]
  - Contusion [Unknown]

NARRATIVE: CASE EVENT DATE: 20231114
